FAERS Safety Report 12985985 (Version 1)
Quarter: 2016Q4

REPORT INFORMATION
  Report Type: Report from Study
  Country: US (occurrence: US)
  Receive Date: 20161130
  Receipt Date: 20161130
  Transmission Date: 20170207
  Serious: Yes (Other)
  Sender: FDA-Public Use
  Company Number: US-BAYER-2016-206248

PATIENT
  Age: 68 Year
  Sex: Male

DRUGS (1)
  1. STIVARGA [Suspect]
     Active Substance: REGORAFENIB
     Indication: COLORECTAL CANCER
     Dosage: DAILY DOSE 160 MG
     Route: 048
     Dates: start: 20161018, end: 201610

REACTIONS (6)
  - Fatigue [Recovering/Resolving]
  - Dysphonia [Recovering/Resolving]
  - Hepatic encephalopathy [None]
  - Hypoaesthesia oral [Recovering/Resolving]
  - Dry skin [Recovering/Resolving]
  - Blood pressure increased [None]

NARRATIVE: CASE EVENT DATE: 201610
